FAERS Safety Report 5830908-1 (Version None)
Quarter: 2008Q3

REPORT INFORMATION
  Report Type: 
  Country: None (occurrence: None)
  Receive Date: 20080801
  Receipt Date: 20080130
  Transmission Date: 20090109
  Serious: No
  Sender: FDA-Public Use
  Company Number: US-BRISTOL-MYERS SQUIBB COMPANY-14058895

PATIENT
  Age: 83 Year
  Sex: Female
  Weight: 63 kg

DRUGS (6)
  1. COUMADIN [Suspect]
     Dosage: STRENGTH 5MG 1 DF=1/2 TAB.INTERRUPTED,RESTARTED 5MG ON 1 DAY AND 1/2 TABLET ON REMAINING DAYS
     Route: 048
     Dates: start: 20060101
  2. PREVACID [Concomitant]
  3. DIGITEK [Concomitant]
  4. ZETIA [Concomitant]
  5. ALTACE [Concomitant]
  6. TENORMIN [Concomitant]

REACTIONS (1)
  - INTERNATIONAL NORMALISED RATIO FLUCTUATION [None]
